FAERS Safety Report 20886579 (Version 1)
Quarter: 2022Q2

REPORT INFORMATION
  Report Type: Spontaneous
  Country: CA (occurrence: CA)
  Receive Date: 20220527
  Receipt Date: 20220527
  Transmission Date: 20220721
  Serious: Yes (Other)
  Sender: FDA-Public Use
  Company Number: CA-NOVARTISPH-NVSC2022CA121277

PATIENT
  Age: 21 Year
  Sex: Male

DRUGS (2)
  1. PANTOPRAZOLE SODIUM [Suspect]
     Active Substance: PANTOPRAZOLE SODIUM
     Indication: Gastric pH decreased
     Dosage: UNK
     Route: 065
     Dates: start: 20211118, end: 20211202
  2. NAPROXEN [Suspect]
     Active Substance: NAPROXEN
     Indication: Myocarditis
     Dosage: UNK
     Route: 065
     Dates: start: 20211118, end: 20211202

REACTIONS (1)
  - Pericarditis [Not Recovered/Not Resolved]

NARRATIVE: CASE EVENT DATE: 20211118
